FAERS Safety Report 4362456-2 (Version None)
Quarter: 2004Q2

REPORT INFORMATION
  Report Type: 
  Country: None (occurrence: None)
  Receive Date: 20040521
  Receipt Date: 20040409
  Transmission Date: 20050107
  Serious: Yes (Hospitalization)
  Sender: FDA-Public Use
  Company Number: JP-GLAXOSMITHKLINE-B0329666A

PATIENT
  Age: 18 Year
  Sex: Female
  Weight: 45.1 kg

DRUGS (8)
  1. VALTREX [Suspect]
     Indication: HERPES ZOSTER
     Route: 048
     Dates: start: 20040329, end: 20040330
  2. PREDONINE [Concomitant]
     Indication: HERPES ZOSTER
     Dosage: 30MG PER DAY
     Route: 065
     Dates: start: 20040329, end: 20040330
  3. CEFAZOLIN [Concomitant]
     Dosage: 1G PER DAY
     Route: 042
     Dates: start: 20040331, end: 20040331
  4. CYANOCOBALAMIN [Concomitant]
     Indication: HERPES ZOSTER
     Dosage: 1500MCG PER DAY
     Route: 048
     Dates: start: 20040329, end: 20040330
  5. BIOTAMIN [Concomitant]
     Indication: HERPES ZOSTER
     Dosage: 75MG PER DAY
     Route: 048
     Dates: start: 20040329, end: 20040330
  6. ADETPHOS [Concomitant]
     Indication: HERPES ZOSTER
     Dosage: 180MG PER DAY
     Route: 048
     Dates: start: 20040329, end: 20040330
  7. FLOMOX [Concomitant]
     Dosage: 99.9MG PER DAY
     Route: 048
     Dates: start: 20040331, end: 20040401
  8. ROPION [Concomitant]
     Indication: EAR PAIN
     Dosage: 50MG PER DAY
     Route: 042
     Dates: start: 20040401, end: 20040401

REACTIONS (7)
  - ABDOMINAL PAIN UPPER [None]
  - DIARRHOEA [None]
  - DISCOMFORT [None]
  - RENAL FAILURE ACUTE [None]
  - URINE OUTPUT DECREASED [None]
  - VOMITING [None]
  - WEIGHT INCREASED [None]
